FAERS Safety Report 4390339-0 (Version None)
Quarter: 2004Q2

REPORT INFORMATION
  Report Type: 
  Country: None (occurrence: None)
  Receive Date: 20040630
  Receipt Date: 20040615
  Transmission Date: 20050107
  Serious: Yes (Hospitalization)
  Sender: FDA-Public Use
  Company Number: 199759

PATIENT
  Age: 47 Year
  Sex: Female

DRUGS (11)
  1. AVONEX [Suspect]
     Indication: MULTIPLE SCLEROSIS
     Dosage: 30 MCG QW IM
     Route: 030
     Dates: start: 20030726
  2. BACTRIM [Concomitant]
  3. PYRIDIUM [Concomitant]
  4. TESSALON [Concomitant]
  5. GUAIFENESIN [Concomitant]
  6. KENALOG [Concomitant]
  7. MARCAINE [Concomitant]
  8. OMNIPAQUE ^AMERSHAM^ [Concomitant]
  9. FENTANYL [Concomitant]
  10. VERSED [Concomitant]
  11. LIDOCAINE [Concomitant]

REACTIONS (8)
  - BACK PAIN [None]
  - EXOSTOSIS [None]
  - HYPERHIDROSIS [None]
  - HYPOTENSION [None]
  - INTERVERTEBRAL DISC DISPLACEMENT [None]
  - LUMBAR SPINAL STENOSIS [None]
  - NAUSEA [None]
  - SPINAL DECOMPRESSION [None]
